FAERS Safety Report 7549640-1 (Version None)
Quarter: 2011Q2

REPORT INFORMATION
  Report Type: 
  Country: None (occurrence: None)
  Receive Date: 20110615
  Receipt Date: 20110608
  Transmission Date: 20111010
  Serious: Yes (Other)
  Sender: FDA-Public Use
  Company Number: US-JNJFOC-20101208154

PATIENT
  Sex: Female

DRUGS (9)
  1. LEVAQUIN [Suspect]
     Indication: PNEUMONIA
     Route: 048
     Dates: start: 20080801
  2. LEVAQUIN [Suspect]
     Indication: RESPIRATORY TRACT INFECTION
     Route: 048
  3. CIPROFLOXACIN [Suspect]
     Indication: PNEUMONIA
     Route: 065
  4. PREDNISONE [Suspect]
     Indication: URTICARIA
     Route: 065
  5. LEVAQUIN [Suspect]
     Route: 048
  6. LEVAQUIN [Suspect]
     Route: 048
  7. LEVAQUIN [Suspect]
     Indication: BRONCHITIS
     Route: 048
     Dates: start: 20080801
  8. LEVAQUIN [Suspect]
     Indication: UPPER RESPIRATORY TRACT INFECTION
     Route: 048
     Dates: start: 20080801
  9. CIPROFLOXACIN [Suspect]
     Indication: RESPIRATORY TRACT INFECTION
     Route: 065

REACTIONS (4)
  - ROTATOR CUFF SYNDROME [None]
  - TENDONITIS [None]
  - TENDON RUPTURE [None]
  - MENISCUS LESION [None]
